FAERS Safety Report 19893386 (Version 1)
Quarter: 2021Q3

REPORT INFORMATION
  Report Type: Spontaneous
  Country: US (occurrence: US)
  Receive Date: 20210928
  Receipt Date: 20210928
  Transmission Date: 20211014
  Serious: No
  Sender: FDA-Public Use
  Company Number: US-SA-2021SA314341

PATIENT
  Age: 59 Year
  Sex: Female

DRUGS (2)
  1. RINVOQ [Concomitant]
     Active Substance: UPADACITINIB
  2. KEVZARA [Suspect]
     Active Substance: SARILUMAB
     Indication: RHEUMATOID ARTHRITIS
     Dosage: 150 MG, QOW

REACTIONS (13)
  - Injection site swelling [Recovering/Resolving]
  - Injection site erythema [Unknown]
  - Injection site discolouration [Unknown]
  - Urticaria [Unknown]
  - Erythema [Unknown]
  - Skin exfoliation [Unknown]
  - Petechiae [Unknown]
  - Skin depigmentation [Unknown]
  - Condition aggravated [Unknown]
  - Fatigue [Unknown]
  - Injection site pain [Unknown]
  - Injection site mass [Unknown]
  - Tinea versicolour [Unknown]
